FAERS Safety Report 9878378 (Version 5)
Quarter: 2015Q4

REPORT INFORMATION
  Report Type: Report from Study
  Country: ZA (occurrence: ZA)
  Receive Date: 20140206
  Receipt Date: 20151104
  Transmission Date: 20160305
  Serious: Yes (Life-Threatening)
  Sender: FDA-Public Use
  Company Number: ZA-ABBVIE-13P-143-1183577-00

PATIENT
  Age: 0 Day
  Sex: Female

DRUGS (6)
  1. CIPROFLOXACIN. [Concomitant]
     Active Substance: CIPROFLOXACIN
     Indication: MATERNAL EXPOSURE TIMING UNSPECIFIED
     Route: 064
  2. DOXYCYCLINE. [Concomitant]
     Active Substance: DOXYCYCLINE
     Indication: MATERNAL EXPOSURE TIMING UNSPECIFIED
     Route: 064
  3. ATAZANAVIR SULFATE [Concomitant]
     Active Substance: ATAZANAVIR SULFATE
     Indication: MATERNAL EXPOSURE TIMING UNSPECIFIED
     Route: 064
  4. METRONIDAZOLE. [Concomitant]
     Active Substance: METRONIDAZOLE
     Indication: MATERNAL EXPOSURE TIMING UNSPECIFIED
     Route: 064
  5. RITONAVIR. [Suspect]
     Active Substance: RITONAVIR
     Indication: MATERNAL EXPOSURE TIMING UNSPECIFIED
     Route: 064
  6. LAMIVUDINE AND ZIDOVUDINE [Concomitant]
     Active Substance: LAMIVUDINE\ZIDOVUDINE
     Indication: MATERNAL EXPOSURE TIMING UNSPECIFIED
     Route: 064

REACTIONS (4)
  - Necrotising colitis [Unknown]
  - Premature baby [Recovering/Resolving]
  - Foetal exposure during pregnancy [Unknown]
  - Sepsis [Unknown]

NARRATIVE: CASE EVENT DATE: 20131208
